FAERS Safety Report 8334830-0 (Version None)
Quarter: 2012Q2

REPORT INFORMATION
  Report Type: 
  Country: None (occurrence: None)
  Receive Date: 20120503
  Receipt Date: 20120427
  Transmission Date: 20120825
  Serious: Yes (Other)
  Sender: FDA-Public Use
  Company Number: RS-PFIZER INC-2012105952

PATIENT
  Age: 63 Year
  Sex: Female

DRUGS (6)
  1. DILCORAN 80 [Concomitant]
     Dosage: 80 MG, UNK
     Route: 048
  2. ZOLOFT [Suspect]
     Dosage: 50 MG, UNK
     Route: 048
  3. ANDOL [Concomitant]
     Dosage: 100 MG, UNK
     Route: 048
  4. METFORMIN HYDROCHLORIDE [Concomitant]
     Dosage: 850 MG, UNK
     Route: 048
  5. LOSARTAN [Concomitant]
     Dosage: 50 MG, UNK
     Route: 048
  6. LORAZEPAM [Concomitant]
     Dosage: 2.5 MG, UNK
     Route: 048

REACTIONS (2)
  - CHEST DISCOMFORT [None]
  - SUFFOCATION FEELING [None]
